FAERS Safety Report 14640839 (Version 1)
Quarter: 2018Q1

REPORT INFORMATION
  Report Type: Spontaneous
  Country: US (occurrence: US)
  Receive Date: 20180314
  Receipt Date: 20180314
  Transmission Date: 20180509
  Serious: Yes (Hospitalization, Disabling)
  Sender: FDA-Public Use
  Company Number: None

PATIENT
  Age: 56 Year
  Sex: Male
  Weight: 63.05 kg

DRUGS (1)
  1. KEYTRUDA [Suspect]
     Active Substance: PEMBROLIZUMAB

REACTIONS (5)
  - Pyrexia [None]
  - Constipation [None]
  - Gastrointestinal disorder [None]
  - Vomiting [None]
  - Overdose [None]

NARRATIVE: CASE EVENT DATE: 20170718
